FAERS Safety Report 24016016 (Version 1)
Quarter: 2024Q2

REPORT INFORMATION
  Report Type: Spontaneous
  Country: PT (occurrence: PT)
  Receive Date: 20240626
  Receipt Date: 20240626
  Transmission Date: 20240715
  Serious: Yes (Other)
  Sender: FDA-Public Use
  Company Number: None

PATIENT
  Sex: Female

DRUGS (1)
  1. PIPERACILLIN SODIUM\TAZOBACTAM SODIUM [Suspect]
     Active Substance: PIPERACILLIN SODIUM\TAZOBACTAM SODIUM
     Indication: Product used for unknown indication
     Dosage: UNKNOWN?FORM OF ADMIN: SOLUTION FOR INJECTION?ROUTE OF ADMIN: INTRAVENOUS
     Dates: end: 20240525

REACTIONS (3)
  - Pruritus [Unknown]
  - Respiratory distress [Unknown]
  - Dysphagia [Unknown]

NARRATIVE: CASE EVENT DATE: 20240525
